FAERS Safety Report 22159507 (Version 1)
Quarter: 2023Q1

REPORT INFORMATION
  Report Type: Report from Study
  Country: US (occurrence: US)
  Receive Date: 20230331
  Receipt Date: 20230331
  Transmission Date: 20230418
  Serious: Yes (Hospitalization)
  Sender: FDA-Public Use
  Company Number: US-JNJFOC-20230359231

PATIENT
  Age: 7 Year
  Sex: Male
  Weight: 71 kg

DRUGS (7)
  1. INFLIXIMAB [Suspect]
     Active Substance: INFLIXIMAB
     Indication: Inflammatory bowel disease
     Route: 041
     Dates: start: 20130823, end: 20140109
  2. INFLIXIMAB [Suspect]
     Active Substance: INFLIXIMAB
     Route: 041
     Dates: start: 20180629, end: 20180720
  3. HUMIRA [Concomitant]
     Active Substance: ADALIMUMAB
     Dates: start: 20140301, end: 20171026
  4. HUMIRA [Concomitant]
     Active Substance: ADALIMUMAB
     Dates: start: 20181018, end: 20220321
  5. STELARA [Concomitant]
     Active Substance: USTEKINUMAB
     Dates: start: 20171110
  6. STELARA [Concomitant]
     Active Substance: USTEKINUMAB
     Dates: start: 20201015, end: 20220303
  7. ENTYVIO [Concomitant]
     Active Substance: VEDOLIZUMAB
     Dates: start: 20180629, end: 20181219

REACTIONS (2)
  - Inflammatory bowel disease [Recovered/Resolved]
  - Staphylococcal infection [Recovered/Resolved]

NARRATIVE: CASE EVENT DATE: 20220315
